FAERS Safety Report 8460306-6 (Version None)
Quarter: 2012Q2

REPORT INFORMATION
  Report Type: 
  Country: None (occurrence: None)
  Receive Date: 20120622
  Receipt Date: 20120612
  Transmission Date: 20120825
  Serious: Yes (Hospitalization, Other)
  Sender: FDA-Public Use
  Company Number: US-ACTELION-A-US2012-67249

PATIENT

DRUGS (5)
  1. TRACLEER [Suspect]
     Indication: PULMONARY ARTERIAL HYPERTENSION
     Dosage: UNK
     Route: 048
     Dates: start: 20080125
  2. ADCIRCA [Concomitant]
  3. COUMADIN [Concomitant]
  4. REMODULIN [Concomitant]
  5. DIURETICS [Concomitant]

REACTIONS (2)
  - ABSCESS [None]
  - HAEMOGLOBIN DECREASED [None]
